FAERS Safety Report 10152656 (Version 1)
Quarter: 2014Q2

REPORT INFORMATION
  Report Type: Spontaneous
  Country: US (occurrence: None)
  Receive Date: 20140502
  Receipt Date: 20140502
  Transmission Date: 20141212
  Serious: Yes (Hospitalization)
  Sender: FDA-Public Use
  Company Number: None

PATIENT
  Age: 80 Year
  Sex: Female
  Weight: 74.3 kg

DRUGS (2)
  1. CISPLATIN [Suspect]
     Indication: NON-SMALL CELL LUNG CANCER
     Dosage: 345 MG, DOSE REDUCED
     Dates: start: 20130815, end: 20131003
  2. GEMCITABINE [Suspect]
     Indication: NON-SMALL CELL LUNG CANCER
     Dosage: DOSE CHANGED
     Dates: end: 20131010

REACTIONS (6)
  - Balance disorder [None]
  - Fall [None]
  - Head injury [None]
  - Pain [None]
  - Mobility decreased [None]
  - Femoral neck fracture [None]
